FAERS Safety Report 11757646 (Version 2)
Quarter: 2015Q4

REPORT INFORMATION
  Report Type: Spontaneous
  Country: RU (occurrence: RU)
  Receive Date: 20151120
  Receipt Date: 20151130
  Transmission Date: 20160304
  Serious: Yes (Life-Threatening, Hospitalization, Other)
  Sender: FDA-Public Use
  Company Number: RU-ABBVIE-12P-251-0898836-00

PATIENT
  Age: 12 Year
  Sex: Male
  Weight: 36 kg

DRUGS (8)
  1. SEVORANE LIQUID FOR INHALATION [Suspect]
     Active Substance: SEVOFLURANE
     Indication: DENTAL CARE
  2. SEVORANE LIQUID FOR INHALATION [Suspect]
     Active Substance: SEVOFLURANE
     Indication: GENERAL ANAESTHESIA
     Dosage: 3 VOL %
     Route: 055
     Dates: start: 20120130, end: 20120130
  3. SUPRASTIN [Concomitant]
     Active Substance: CHLOROPYRAMINE HYDROCHLORIDE
     Indication: PREMEDICATION
     Route: 042
     Dates: start: 20120130, end: 20120130
  4. FENTANYL. [Concomitant]
     Active Substance: FENTANYL
     Indication: PRODUCT USED FOR UNKNOWN INDICATION
     Route: 042
  5. ROCURONIUM [Concomitant]
     Active Substance: ROCURONIUM BROMIDE
     Indication: MUSCLE RELAXANT THERAPY
     Dates: start: 20120130, end: 20120130
  6. ATROPINE. [Concomitant]
     Active Substance: ATROPINE
     Indication: PREMEDICATION
     Route: 042
     Dates: start: 20120130, end: 20120130
  7. FULSED [Concomitant]
     Indication: PREMEDICATION
     Dosage: 3 MG DAILY
     Route: 042
     Dates: start: 20120130, end: 20120130
  8. PROPOFOL. [Concomitant]
     Active Substance: PROPOFOL
     Indication: ANAESTHESIA
     Dosage: 3 MG/KG/HOUR
     Route: 042
     Dates: start: 20120130, end: 20120130

REACTIONS (6)
  - Myalgia [Unknown]
  - Hyperthermia malignant [Recovering/Resolving]
  - Livedo reticularis [Unknown]
  - Respiratory alkalosis [Unknown]
  - Acidosis [Unknown]
  - Cardiovascular disorder [Unknown]

NARRATIVE: CASE EVENT DATE: 20120130
